FAERS Safety Report 8550481-7 (Version None)
Quarter: 2012Q3

REPORT INFORMATION
  Report Type: 
  Country: None (occurrence: None)
  Receive Date: 20120730
  Receipt Date: 20120723
  Transmission Date: 20120928
  Serious: Yes (Other)
  Sender: FDA-Public Use
  Company Number: DE-BRISTOL-MYERS SQUIBB COMPANY-16772196

PATIENT
  Age: 43 Year
  Sex: Male
  Weight: 67 kg

DRUGS (3)
  1. ATAZANAVIR [Suspect]
     Indication: HIV INFECTION
     Dosage: TABLETS
     Route: 048
     Dates: start: 20110601, end: 20120501
  2. EMTRICITABINE [Suspect]
     Indication: HIV INFECTION
     Route: 048
     Dates: start: 20110601
  3. RITONAVIR [Suspect]
     Indication: HIV INFECTION
     Dosage: TABLETS
     Route: 048
     Dates: start: 20110601

REACTIONS (5)
  - JAUNDICE [None]
  - FLANK PAIN [None]
  - HYPERBILIRUBINAEMIA [None]
  - GAMMA-GLUTAMYLTRANSFERASE INCREASED [None]
  - BILIRUBINURIA [None]
